FAERS Safety Report 17398457 (Version 1)
Quarter: 2020Q1

REPORT INFORMATION
  Report Type: Spontaneous
  Country: US (occurrence: US)
  Receive Date: 20200210
  Receipt Date: 20200210
  Transmission Date: 20200409
  Serious: No
  Sender: FDA-Public Use
  Company Number: US-VAYAPHARMA-2017-US-017251

PATIENT
  Age: 14 Year
  Sex: Male

DRUGS (1)
  1. VAYARIN (NON-SPECIFIC) [Suspect]
     Active Substance: DOCONEXENT\ICOSAPENT\PHOSPHATIDYL SERINE
     Indication: ATTENTION DEFICIT/HYPERACTIVITY DISORDER
     Dosage: 2CAPS PER DAY
     Route: 065

REACTIONS (6)
  - Disturbance in attention [Unknown]
  - Weight increased [Unknown]
  - Agitation [Unknown]
  - Anxiety [Unknown]
  - Restlessness [Unknown]
  - Educational problem [Unknown]
